FAERS Safety Report 9892865 (Version 3)
Quarter: 2014Q1

REPORT INFORMATION
  Report Type: Spontaneous
  Country: JP (occurrence: JP)
  Receive Date: 20140213
  Receipt Date: 20140318
  Transmission Date: 20141002
  Serious: Yes (Life-Threatening, Other)
  Sender: FDA-Public Use
  Company Number: JP-ROCHE-1344660

PATIENT
  Age: 53 Year
  Sex: Female
  Weight: 57 kg

DRUGS (8)
  1. PERJETA [Suspect]
     Indication: BREAST CANCER
     Route: 041
     Dates: start: 20131209, end: 20131209
  2. PERJETA [Suspect]
     Indication: BREAST CANCER
     Route: 041
     Dates: start: 20140107, end: 20140128
  3. HERCEPTIN [Suspect]
     Indication: BREAST CANCER
     Route: 041
     Dates: start: 20130823
  4. DOCETAXEL [Concomitant]
     Indication: BREAST CANCER
     Route: 041
     Dates: start: 20131210, end: 20131210
  5. DOCETAXEL [Concomitant]
     Indication: BREAST CANCER
     Route: 041
     Dates: start: 20140107, end: 20140107
  6. DOCETAXEL [Concomitant]
     Indication: BREAST CANCER
     Route: 041
     Dates: start: 20140128, end: 20140128
  7. PACLITAXEL [Concomitant]
     Indication: BREAST CANCER
     Dosage: DOSAGE: IT IS UNCERTAIN BECAUSE OF ANOTHER YUAN.
     Route: 041
     Dates: start: 20130711, end: 201311
  8. SULFADIAZINE [Concomitant]
     Indication: BREAST CANCER
     Dosage: DRUG REPORTED AS THERADIA
     Route: 003
     Dates: start: 20131220

REACTIONS (6)
  - Hypotension [Recovered/Resolved]
  - Shock [Recovered/Resolved]
  - Gastric ulcer [Unknown]
  - Gastritis [Unknown]
  - Malignant ascites [Unknown]
  - Xeroderma [Unknown]
